FAERS Safety Report 10530052 (Version 1)
Quarter: 2014Q4

REPORT INFORMATION
  Report Type: Spontaneous
  Country: US (occurrence: None)
  Receive Date: 20141020
  Receipt Date: 20141020
  Transmission Date: 20150528
  Serious: Yes (Hospitalization, Disabling)
  Sender: FDA-Public Use
  Company Number: None

PATIENT
  Age: 58 Year
  Sex: Male
  Weight: 90.72 kg

DRUGS (1)
  1. CIPROFLOXACIN. [Suspect]
     Active Substance: CIPROFLOXACIN
     Indication: INFECTION PROPHYLAXIS
     Route: 048

REACTIONS (7)
  - Gait disturbance [None]
  - Tendon pain [None]
  - Perineal pain [None]
  - Formication [None]
  - Urinary incontinence [None]
  - Faecal incontinence [None]
  - Neuropathy peripheral [None]

NARRATIVE: CASE EVENT DATE: 20140219
